FAERS Safety Report 9944704 (Version 1)
Quarter: 2014Q1

REPORT INFORMATION
  Report Type: Report from Study
  Country: US (occurrence: US)
  Receive Date: 20140303
  Receipt Date: 20140303
  Transmission Date: 20141002
  Serious: No
  Sender: FDA-Public Use
  Company Number: US-ABBVIE-13P-163-1052912-00

PATIENT
  Age: 50 Year
  Sex: Female

DRUGS (5)
  1. HUMIRA [Suspect]
     Indication: CROHN^S DISEASE
     Route: 058
     Dates: start: 20121009
  2. EFFEXOR [Concomitant]
     Indication: DEPRESSION
     Dosage: DAILY
  3. WELLBUTRIN [Concomitant]
     Indication: DEPRESSION
     Dosage: DAILY
  4. HIGH BLOOD PRESSURE MEDICATION [Concomitant]
     Indication: PRODUCT USED FOR UNKNOWN INDICATION
  5. THYROXINE [Concomitant]
     Indication: HYPOTHYROIDISM

REACTIONS (3)
  - Feeling abnormal [Not Recovered/Not Resolved]
  - Amenorrhoea [Not Recovered/Not Resolved]
  - Headache [Not Recovered/Not Resolved]
